FAERS Safety Report 7823339-6 (Version None)
Quarter: 2011Q4

REPORT INFORMATION
  Report Type: 
  Country: None (occurrence: None)
  Receive Date: 20111014
  Receipt Date: 20110928
  Transmission Date: 20120403
  Serious: Yes (Other)
  Sender: FDA-Public Use
  Company Number: TPA2011A06295

PATIENT
  Age: 72 Year
  Sex: Male

DRUGS (2)
  1. METFORMIN HCL [Concomitant]
  2. ACTOS [Suspect]
     Indication: TYPE 2 DIABETES MELLITUS
     Dosage: 30 MG
     Dates: start: 20020101

REACTIONS (1)
  - BLADDER CANCER [None]
